FAERS Safety Report 7532872-6 (Version None)
Quarter: 2011Q2

REPORT INFORMATION
  Report Type: 
  Country: None (occurrence: None)
  Receive Date: 20110608
  Receipt Date: 20110602
  Transmission Date: 20111010
  Serious: Yes (Life-Threatening, Hospitalization)
  Sender: FDA-Public Use
  Company Number: JP-PFIZER INC-2010132703

PATIENT
  Age: 76 Year
  Sex: Male
  Weight: 52.4 kg

DRUGS (9)
  1. ZITHROMAX [Suspect]
     Dosage: 250 MG, 2X/DAY
     Route: 048
     Dates: start: 20101007, end: 20101009
  2. ZITHROMAX [Suspect]
     Indication: INFECTION PROPHYLAXIS
     Dosage: 250 MG, 2X/DAY
     Route: 048
     Dates: start: 20100930, end: 20101002
  3. CIBENOL [Suspect]
     Indication: ATRIAL FIBRILLATION
     Dosage: UNK
     Dates: start: 20100528, end: 20101015
  4. PERSANTIN [Concomitant]
  5. LANSOPRAZOLE [Concomitant]
  6. VERAPAMIL HCL [Concomitant]
  7. ZITHROMAX [Suspect]
     Indication: TOOTH DISORDER
     Dosage: 250 MG, 2X/DAY
     Route: 048
     Dates: start: 20100909, end: 20100911
  8. DEPAS [Concomitant]
  9. ALOSITOL [Concomitant]

REACTIONS (1)
  - INTERSTITIAL LUNG DISEASE [None]
